FAERS Safety Report 5243286-6 (Version None)
Quarter: 2007Q1

REPORT INFORMATION
  Report Type: 
  Country: None (occurrence: None)
  Receive Date: 20070215
  Receipt Date: 20070202
  Transmission Date: 20070707
  Serious: Yes (Other)
  Sender: FDA-Public Use
  Company Number: S06-UKI-04468-01

PATIENT
  Age: 22 Year
  Sex: Female
  Weight: 105.6 kg

DRUGS (2)
  1. CIPRALEX (ESCITALOPRAM) [Suspect]
     Indication: DEPRESSION
     Dosage: 20 MG QD PO
     Route: 048
     Dates: start: 20030218, end: 20060504
  2. PROMAZINE HYDROCHLORIDE [Suspect]
     Indication: REACTIVE PSYCHOSIS
     Dosage: 75 MG QD PO
     Route: 048
     Dates: start: 20031212, end: 20060504

REACTIONS (5)
  - CAESAREAN SECTION [None]
  - DRUG EXPOSURE DURING PREGNANCY [None]
  - LABOUR COMPLICATION [None]
  - PREGNANCY [None]
  - TREATMENT NONCOMPLIANCE [None]
